FAERS Safety Report 6674431-3 (Version None)
Quarter: 2010Q2

REPORT INFORMATION
  Report Type: 
  Country: None (occurrence: None)
  Receive Date: 20100409
  Receipt Date: 20100331
  Transmission Date: 20101027
  Serious: Yes (Hospitalization)
  Sender: FDA-Public Use
  Company Number: PHHY2010JP00964

PATIENT
  Sex: Female
  Weight: 52 kg

DRUGS (2)
  1. TEGRETOL [Suspect]
     Indication: EPILEPSY
     Dosage: TWO 100 MG TABLETS DAILY
     Route: 048
     Dates: start: 20091203
  2. DEPAKENE [Concomitant]
     Indication: EPILEPSY
     Dosage: 400 MG, BID
     Route: 048
     Dates: start: 20070101

REACTIONS (5)
  - BODY TEMPERATURE INCREASED [None]
  - DRUG ERUPTION [None]
  - LIVER DISORDER [None]
  - LYMPHOCYTE MORPHOLOGY ABNORMAL [None]
  - RASH GENERALISED [None]
